FAERS Safety Report 6710078-8 (Version None)
Quarter: 2010Q2

REPORT INFORMATION
  Report Type: 
  Country: None (occurrence: None)
  Receive Date: 20100504
  Receipt Date: 20100421
  Transmission Date: 20101027
  Serious: No
  Sender: FDA-Public Use
  Company Number: US-B.I. PHARMACEUTICALS,INC./RIDGEFIELD-2010-BP-04619BP

PATIENT
  Age: 70 Year
  Sex: Female

DRUGS (9)
  1. COMBIVENT [Suspect]
     Indication: EMPHYSEMA
     Route: 055
  2. COMBIVENT [Suspect]
     Indication: CHRONIC OBSTRUCTIVE PULMONARY DISEASE
  3. POTASSIUM [Concomitant]
     Indication: MINERAL SUPPLEMENTATION
  4. MIRTAZAPINE [Concomitant]
     Indication: SLEEP DISORDER
  5. UNIPHYL [Concomitant]
     Indication: EMPHYSEMA
  6. QVAR 40 [Concomitant]
     Indication: EMPHYSEMA
  7. OXYGEN [Concomitant]
     Indication: EMPHYSEMA
  8. PREDNISONE TAB [Concomitant]
     Indication: EMPHYSEMA
  9. PROAIR HFA [Concomitant]
     Indication: EMPHYSEMA

REACTIONS (4)
  - ARTHRITIS [None]
  - GASTROOESOPHAGEAL REFLUX DISEASE [None]
  - HYPERTENSION [None]
  - OROPHARYNGEAL PAIN [None]
